FAERS Safety Report 24815610 (Version 1)
Quarter: 2025Q1

REPORT INFORMATION
  Report Type: Spontaneous
  Country: US (occurrence: None)
  Receive Date: 20250107
  Receipt Date: 20250107
  Transmission Date: 20250409
  Serious: Yes (Hospitalization)
  Sender: FDA-CTU
  Company Number: None

PATIENT
  Age: 76 Year
  Sex: Male

DRUGS (2)
  1. ALBUTEROL SULFATE\IPRATROPIUM BROMIDE [Suspect]
     Active Substance: ALBUTEROL SULFATE\IPRATROPIUM BROMIDE
     Route: 055
     Dates: start: 20241015, end: 20241015
  2. CARDIZEM [Suspect]
     Active Substance: DILTIAZEM HYDROCHLORIDE

REACTIONS (3)
  - Angina pectoris [None]
  - Atrial fibrillation [None]
  - Blood pressure systolic decreased [None]

NARRATIVE: CASE EVENT DATE: 20241015
